FAERS Safety Report 25115775 (Version 2)
Quarter: 2025Q1

REPORT INFORMATION
  Report Type: Spontaneous
  Country: JP (occurrence: JP)
  Receive Date: 20250325
  Receipt Date: 20250328
  Transmission Date: 20250409
  Serious: Yes (Other)
  Sender: TEVA
  Company Number: JP-TEVA-VS-3311122

PATIENT
  Sex: Female
  Weight: 2.379 kg

DRUGS (2)
  1. BISOPROLOL [Suspect]
     Active Substance: BISOPROLOL
     Indication: Duchenne muscular dystrophy
     Route: 064
  2. FLECAINIDE [Suspect]
     Active Substance: FLECAINIDE
     Indication: Duchenne muscular dystrophy
     Route: 064

REACTIONS (3)
  - Conduction disorder [Unknown]
  - Atrioventricular block [Unknown]
  - Foetal exposure during pregnancy [Unknown]
